FAERS Safety Report 9370357 (Version 1)
Quarter: 2013Q2

REPORT INFORMATION
  Report Type: Spontaneous
  Country: ES (occurrence: ES)
  Receive Date: 20130626
  Receipt Date: 20130626
  Transmission Date: 20140414
  Serious: Yes (Death)
  Sender: FDA-Public Use
  Company Number: ES-TEVA-413532ISR

PATIENT
  Age: 49 Year
  Sex: Female

DRUGS (2)
  1. SIMVASTATIN [Suspect]
     Indication: OVERDOSE
     Dosage: 120MG
     Route: 048
  2. COLCHICINE [Interacting]
     Indication: OVERDOSE
     Dosage: 20MG
     Route: 048

REACTIONS (4)
  - Toxicity to various agents [Fatal]
  - Cardiac arrest [Fatal]
  - Overdose [Fatal]
  - Drug interaction [Fatal]
